FAERS Safety Report 5329834-6 (Version None)
Quarter: 2007Q2

REPORT INFORMATION
  Report Type: 
  Country: None (occurrence: None)
  Receive Date: 20070521
  Receipt Date: 20070508
  Transmission Date: 20071010
  Serious: Yes (Other)
  Sender: FDA-Public Use
  Company Number: JP-ROCHE-489072

PATIENT
  Age: 4 Year
  Sex: Male
  Weight: 16 kg

DRUGS (5)
  1. TAMIFLU [Suspect]
     Dosage: FORM: DRY SYRUP.
     Route: 048
     Dates: start: 20070317, end: 20070318
  2. PERIACTIN [Concomitant]
     Route: 048
     Dates: start: 20070317, end: 20070320
  3. ASVERIN [Concomitant]
     Route: 048
     Dates: start: 20070317, end: 20070320
  4. MUCOSAL [Concomitant]
     Route: 048
     Dates: start: 20070317, end: 20070320
  5. HOKUNALIN [Concomitant]
     Route: 048
     Dates: start: 20070317, end: 20070320

REACTIONS (4)
  - CLONIC CONVULSION [None]
  - DELIRIUM [None]
  - DEPRESSED LEVEL OF CONSCIOUSNESS [None]
  - VOMITING [None]
